FAERS Safety Report 20161994 (Version 1)
Quarter: 2021Q4

REPORT INFORMATION
  Report Type: Spontaneous
  Country: JP (occurrence: JP)
  Receive Date: 20211208
  Receipt Date: 20211208
  Transmission Date: 20220304
  Serious: Yes (Other)
  Sender: FDA-Public Use
  Company Number: JP-ANIPHARMA-2021-JP-000591

PATIENT
  Sex: Female
  Weight: 36 kg

DRUGS (1)
  1. CANDESARTAN CILEXETIL [Suspect]
     Active Substance: CANDESARTAN CILEXETIL
     Indication: Product used for unknown indication
     Dosage: HALF A TABLET (2 MG)
     Route: 048
     Dates: start: 20201020

REACTIONS (6)
  - Visual impairment [Unknown]
  - Loss of consciousness [Unknown]
  - Amnesia [Unknown]
  - Blood potassium increased [Recovered/Resolved]
  - Thought blocking [Unknown]
  - Tinnitus [Unknown]

NARRATIVE: CASE EVENT DATE: 20201022
